FAERS Safety Report 9295442 (Version 1)
Quarter: 2013Q2

REPORT INFORMATION
  Report Type: Spontaneous
  Country: US (occurrence: US)
  Receive Date: 20130517
  Receipt Date: 20130517
  Transmission Date: 20140414
  Serious: Yes (Other)
  Sender: FDA-Public Use
  Company Number: US-TEVA-405082USA

PATIENT
  Sex: Female

DRUGS (1)
  1. COPAXONE [Suspect]
     Indication: MULTIPLE SCLEROSIS
     Dates: start: 20050627, end: 20060630

REACTIONS (4)
  - Multiple sclerosis relapse [Unknown]
  - Blindness [Unknown]
  - Hypoaesthesia [Unknown]
  - Drug ineffective [Unknown]
